FAERS Safety Report 7590731-7 (Version None)
Quarter: 2011Q3

REPORT INFORMATION
  Report Type: 
  Country: None (occurrence: None)
  Receive Date: 20110705
  Receipt Date: 20110621
  Transmission Date: 20111222
  Serious: Yes (Other)
  Sender: FDA-Public Use
  Company Number: PHHY2011DE55442

PATIENT
  Age: 64 Year
  Sex: Female

DRUGS (4)
  1. FEMARA [Suspect]
     Dosage: 2.5 MG, UNK
     Route: 048
     Dates: start: 20110517
  2. OLMESARTAN MEDOXOMIL AND HYDROCHLOROTHIZIDE [Concomitant]
  3. FEMARA [Suspect]
     Indication: BREAST CANCER
     Dosage: 2.5 MG, UNK
     Route: 048
     Dates: start: 20100419, end: 20110413
  4. BISOPROLOL FUMARATE [Concomitant]
     Dosage: 5 MG, UNK

REACTIONS (2)
  - BREAST CANCER [None]
  - NEOPLASM MALIGNANT [None]
